FAERS Safety Report 17189405 (Version 1)
Quarter: 2019Q4

REPORT INFORMATION
  Report Type: Spontaneous
  Country: US (occurrence: US)
  Receive Date: 20191223
  Receipt Date: 20191223
  Transmission Date: 20200122
  Serious: Yes (Hospitalization)
  Sender: FDA-Public Use
  Company Number: US-ROCHE-2497152

PATIENT
  Age: 18 Year
  Sex: Female

DRUGS (11)
  1. CLONIDINE. [Concomitant]
     Active Substance: CLONIDINE
     Route: 048
  2. NICARDIPINE [Concomitant]
     Active Substance: NICARDIPINE
     Route: 041
  3. CELLCEPT [Suspect]
     Active Substance: MYCOPHENOLATE MOFETIL\MYCOPHENOLATE MOFETIL HYDROCHLORIDE
     Indication: LUPUS NEPHRITIS
     Route: 065
  4. NIFEDIPINE. [Concomitant]
     Active Substance: NIFEDIPINE
     Route: 041
  5. HYDRALAZINE [Concomitant]
     Active Substance: HYDRALAZINE HYDROCHLORIDE
     Route: 042
  6. LORAZEPAM. [Concomitant]
     Active Substance: LORAZEPAM
     Route: 042
  7. METOPROLOL. [Concomitant]
     Active Substance: METOPROLOL
     Route: 041
  8. PREDNISONE. [Concomitant]
     Active Substance: PREDNISONE
     Indication: LUPUS NEPHRITIS
  9. LEVETIRACETAM. [Concomitant]
     Active Substance: LEVETIRACETAM
     Route: 042
  10. EPOETIN ALFA [Concomitant]
     Active Substance: ERYTHROPOIETIN
     Route: 041
  11. FOLIC ACID. [Concomitant]
     Active Substance: FOLIC ACID
     Route: 041

REACTIONS (1)
  - Posterior reversible encephalopathy syndrome [Recovering/Resolving]
